FAERS Safety Report 6524305-3 (Version None)
Quarter: 2009Q4

REPORT INFORMATION
  Report Type: 
  Country: None (occurrence: None)
  Receive Date: 20091231
  Receipt Date: 20091230
  Transmission Date: 20100525
  Serious: Yes (Other)
  Sender: FDA-Public Use
  Company Number: US-MERCK-0910USA00963

PATIENT
  Age: 5 Year
  Sex: Male
  Weight: 24 kg

DRUGS (6)
  1. SINGULAIR [Suspect]
     Indication: ASTHMA
     Route: 048
     Dates: start: 20060101, end: 20070101
  2. SINGULAIR [Suspect]
     Route: 048
     Dates: start: 20070101
  3. VYVANSE [Suspect]
     Indication: ATTENTION DEFICIT/HYPERACTIVITY DISORDER
     Route: 048
     Dates: start: 20080101, end: 20090601
  4. VYVANSE [Suspect]
     Route: 048
     Dates: start: 20090601
  5. CYPROHEPTADINE HYDROCHLORIDE [Concomitant]
     Route: 065
  6. ADDERALL XR 10 [Suspect]
     Indication: ATTENTION DEFICIT/HYPERACTIVITY DISORDER
     Route: 065
     Dates: start: 20060101, end: 20080101

REACTIONS (15)
  - ABDOMINAL PAIN [None]
  - AGGRESSION [None]
  - AUTISM [None]
  - DECREASED APPETITE [None]
  - DISTURBANCE IN ATTENTION [None]
  - EDUCATIONAL PROBLEM [None]
  - FEELING ABNORMAL [None]
  - GROWTH RETARDATION [None]
  - HEADACHE [None]
  - IMPULSIVE BEHAVIOUR [None]
  - IRRITABILITY [None]
  - MOOD ALTERED [None]
  - PALLOR [None]
  - SOCIAL AVOIDANT BEHAVIOUR [None]
  - WEIGHT DECREASED [None]
